FAERS Safety Report 22967352 (Version 3)
Quarter: 2024Q2

REPORT INFORMATION
  Report Type: Spontaneous
  Country: US (occurrence: US)
  Receive Date: 20230921
  Receipt Date: 20240422
  Transmission Date: 20240716
  Serious: No
  Sender: FDA-Public Use
  Company Number: US-PFIZER INC-PV202300155779

PATIENT
  Age: 78 Year
  Sex: Female

DRUGS (1)
  1. IBRANCE [Suspect]
     Active Substance: PALBOCICLIB
     Dosage: TAKE ONE TABLET ONCE DAILY TAKEN WITH OR WITHOUT FOOD FOR 21 DAYS FOLLOWED BY 7 DAYS OFF TREATMENT
     Route: 048

REACTIONS (2)
  - Neoplasm recurrence [Unknown]
  - Hot flush [Unknown]
